FAERS Safety Report 4369098-3 (Version None)
Quarter: 2004Q2

REPORT INFORMATION
  Report Type: 
  Country: None (occurrence: None)
  Receive Date: 20040528
  Receipt Date: 20040518
  Transmission Date: 20050107
  Serious: Yes (Other)
  Sender: FDA-Public Use
  Company Number: 2004213818CA

PATIENT
  Age: 25 Year
  Sex: Female
  Weight: 63.5 kg

DRUGS (2)
  1. DEPO-PROVERA [Suspect]
     Indication: CONTRACEPTION
     Dosage: 150 MG, 1ST AND 2ND INJECTION, INTRAMUSCULAR
     Route: 030
     Dates: start: 20010614, end: 20010614
  2. DEPO-PROVERA [Suspect]
     Indication: CONTRACEPTION
     Dosage: 150 MG, 1ST AND 2ND INJECTION, INTRAMUSCULAR
     Route: 030
     Dates: start: 20040319, end: 20040319

REACTIONS (3)
  - BREAST SWELLING [None]
  - FACIAL PALSY [None]
  - VAGINAL HAEMORRHAGE [None]
